FAERS Safety Report 10179623 (Version 1)
Quarter: 2014Q2

REPORT INFORMATION
  Report Type: Report from Study
  Country: CA (occurrence: CA)
  Receive Date: 20140519
  Receipt Date: 20140519
  Transmission Date: 20141212
  Serious: Yes (Other)
  Sender: FDA-Public Use
  Company Number: CA-JNJFOC-20140508820

PATIENT
  Age: 69 Year
  Sex: Male
  Weight: 94.8 kg

DRUGS (1)
  1. REMICADE [Suspect]
     Indication: RHEUMATOID ARTHRITIS
     Route: 042
     Dates: start: 2011

REACTIONS (4)
  - Loss of consciousness [Unknown]
  - Upper limb fracture [Unknown]
  - Fall [Unknown]
  - Dizziness [Unknown]
